FAERS Safety Report 6602410-0 (Version None)
Quarter: 2010Q1

REPORT INFORMATION
  Report Type: 
  Country: None (occurrence: None)
  Receive Date: 20100225
  Receipt Date: 20100218
  Transmission Date: 20100710
  Serious: Yes (Death)
  Sender: FDA-Public Use
  Company Number: B0636004A

PATIENT
  Sex: Male

DRUGS (2)
  1. MALANIL [Suspect]
     Indication: MALARIA PROPHYLAXIS
     Route: 065
  2. HUMIRA [Suspect]
     Indication: IMMUNOSUPPRESSION
     Route: 065

REACTIONS (2)
  - ADVERSE DRUG REACTION [None]
  - DEATH [None]
